FAERS Safety Report 24889422 (Version 2)
Quarter: 2025Q1

REPORT INFORMATION
  Report Type: Spontaneous
  Country: JP (occurrence: JP)
  Receive Date: 20250127
  Receipt Date: 20250204
  Transmission Date: 20250409
  Serious: Yes (Death, Other)
  Sender: ALEXION PHARMACEUTICALS
  Company Number: JP-ASTRAZENECA-250006835_064320_P_1

PATIENT
  Age: 81 Year
  Weight: 75 kg

DRUGS (8)
  1. ANDEXXA [Suspect]
     Active Substance: ANDEXANET ALFA
     Indication: Aortic dissection
  2. APIXABAN [Concomitant]
     Active Substance: APIXABAN
     Indication: Atrial fibrillation
  3. HEPARIN SODIUM [Concomitant]
     Active Substance: HEPARIN SODIUM
     Route: 065
  4. PROTAMINE [Concomitant]
     Active Substance: PROTAMINE
     Route: 065
  5. PROTAMINE [Concomitant]
     Active Substance: PROTAMINE
     Route: 065
  6. PROTAMINE [Concomitant]
     Active Substance: PROTAMINE
     Route: 065
  7. NOREPINEPHRINE BITARTRATE [Concomitant]
     Active Substance: NOREPINEPHRINE BITARTRATE
     Route: 065
  8. EPINEPHRINE [Concomitant]
     Active Substance: EPINEPHRINE
     Route: 065

REACTIONS (1)
  - Cardiogenic shock [Fatal]
